FAERS Safety Report 11057840 (Version 1)
Quarter: 2015Q2

REPORT INFORMATION
  Report Type: Report from Study
  Country: CA (occurrence: CA)
  Receive Date: 20150423
  Receipt Date: 20150423
  Transmission Date: 20150821
  Serious: Yes (Hospitalization, Other)
  Sender: FDA-Public Use
  Company Number: CA-AMGEN-CANSL2015037192

PATIENT
  Age: 52 Year
  Sex: Male

DRUGS (11)
  1. CIPRALEX [Concomitant]
     Active Substance: ESCITALOPRAM OXALATE
  2. COVERSYL                           /00790702/ [Concomitant]
     Active Substance: PERINDOPRIL
     Indication: BLOOD PRESSURE
     Dosage: 8 MG, UNK
  3. VITAMIN C [Concomitant]
     Active Substance: ASCORBIC ACID
  4. VITAMIN B [Concomitant]
     Active Substance: VITAMIN B
  5. XARELTO [Suspect]
     Active Substance: RIVAROXABAN
     Indication: DEEP VEIN THROMBOSIS
     Route: 065
  6. PROGRAFT [Concomitant]
     Active Substance: TACROLIMUS
     Indication: LIVER TRANSPLANT
  7. CALCIUM [Concomitant]
     Active Substance: CALCIUM
  8. VITAMIN D                          /00107901/ [Concomitant]
     Active Substance: ERGOCALCIFEROL
  9. MIRTAZAPINE. [Concomitant]
     Active Substance: MIRTAZAPINE
  10. PROLIA [Suspect]
     Active Substance: DENOSUMAB
     Indication: OSTEOPENIA
     Dosage: 60 MG, UNK
     Route: 058
     Dates: start: 20120105
  11. MVI                                /01825701/ [Concomitant]

REACTIONS (3)
  - Deep vein thrombosis [Not Recovered/Not Resolved]
  - Gastrointestinal haemorrhage [Unknown]
  - Pulmonary venous thrombosis [Not Recovered/Not Resolved]

NARRATIVE: CASE EVENT DATE: 201503
